FAERS Safety Report 9306977 (Version 1)
Quarter: 2013Q2

REPORT INFORMATION
  Report Type: Spontaneous
  Country: US (occurrence: US)
  Receive Date: 20130523
  Receipt Date: 20130523
  Transmission Date: 20140414
  Serious: Yes (Other)
  Sender: FDA-Public Use
  Company Number: US-BAYER-2013-062816

PATIENT
  Age: 84 Year
  Sex: Female
  Weight: 43 kg

DRUGS (1)
  1. PHILLIPS^ MILK OF MAGNESIA [Suspect]
     Indication: CONSTIPATION
     Dosage: 2-3 TABLE SPOON

REACTIONS (1)
  - Drug dependence [Not Recovered/Not Resolved]
